FAERS Safety Report 9674174 (Version 3)
Quarter: 2013Q4

REPORT INFORMATION
  Report Type: Spontaneous
  Country: US (occurrence: US)
  Receive Date: 20131106
  Receipt Date: 20131202
  Transmission Date: 20140711
  Serious: Yes (Other)
  Sender: FDA-Public Use
  Company Number: US-AMGEN-USASP2013069732

PATIENT
  Age: 71 Year
  Sex: Male
  Weight: 70.3 kg

DRUGS (7)
  1. ENBREL [Suspect]
     Indication: PSORIASIS
     Dosage: 50 MG, QWK
     Route: 058
     Dates: start: 20080529
  2. ENBREL [Suspect]
     Indication: PSORIATIC ARTHROPATHY
  3. LISINOPRIL [Concomitant]
     Dosage: UNK
     Route: 048
  4. CRESTOR [Concomitant]
     Dosage: UNK
     Route: 048
  5. NIASPAN [Concomitant]
     Dosage: UNK
     Route: 048
  6. METFORMIN [Concomitant]
     Dosage: UNK
     Route: 048
  7. ASPIRIN [Concomitant]
     Dosage: UNK

REACTIONS (2)
  - Latent tuberculosis [Not Recovered/Not Resolved]
  - Vitiligo [Unknown]
